FAERS Safety Report 7999379-3 (Version None)
Quarter: 2011Q4

REPORT INFORMATION
  Report Type: 
  Country: None (occurrence: None)
  Receive Date: 20111221
  Receipt Date: 20111018
  Transmission Date: 20120403
  Serious: Yes (Hospitalization, Other)
  Sender: FDA-Public Use
  Company Number: PHHO2011FR13537

PATIENT
  Sex: Female
  Weight: 53 kg

DRUGS (2)
  1. AFINITOR [Suspect]
     Indication: BREAST CANCER METASTATIC
     Dosage: CODE NOT BROKEN
     Dates: start: 20101206, end: 20110728
  2. EXEMESTANE [Suspect]
     Indication: BREAST CANCER METASTATIC
     Dosage: 25 MG, QD
     Dates: start: 20101206, end: 20110728

REACTIONS (2)
  - RETINAL ARTERY THROMBOSIS [None]
  - GENERAL PHYSICAL HEALTH DETERIORATION [None]
